FAERS Safety Report 7294711-0 (Version None)
Quarter: 2011Q1

REPORT INFORMATION
  Report Type: 
  Country: None (occurrence: None)
  Receive Date: 20110207
  Receipt Date: 20110125
  Transmission Date: 20110831
  Serious: Yes (Death, Hospitalization)
  Sender: FDA-Public Use
  Company Number: KADN20110006

PATIENT
  Age: 44 Year
  Sex: Male

DRUGS (5)
  1. ACETAMINOPHEN AND HYDROCODONE BITARTRATE [Suspect]
     Indication: PRODUCT USED FOR UNKNOWN INDICATION
     Dosage: PER ORAL
     Route: 048
     Dates: end: 20090101
  2. MORPHINE 60 MG SUSTAINED RELEASE [Suspect]
     Indication: PRODUCT USED FOR UNKNOWN INDICATION
     Dosage: PER ORAL
     Route: 048
     Dates: end: 20090101
  3. ERYTHROMYCIN [Suspect]
     Indication: PRODUCT USED FOR UNKNOWN INDICATION
     Dosage: PER ORAL
     Route: 048
     Dates: end: 20090101
  4. TRICYCLIC ANTIDEPRESSANT [Suspect]
     Indication: PRODUCT USED FOR UNKNOWN INDICATION
     Dosage: PER ORAL
     Route: 048
     Dates: end: 20090101
  5. ACETAMINOPHEN 650 MG/PROPOXYPHENE 100 MG [Suspect]
     Indication: PRODUCT USED FOR UNKNOWN INDICATION
     Dosage: PER ORAL
     Route: 048
     Dates: end: 20090101

REACTIONS (17)
  - MIOSIS [None]
  - BLOOD PH DECREASED [None]
  - HAEMODYNAMIC INSTABILITY [None]
  - BLOOD CREATINE PHOSPHOKINASE INCREASED [None]
  - NO THERAPEUTIC RESPONSE [None]
  - BODY TEMPERATURE INCREASED [None]
  - AMMONIA INCREASED [None]
  - ENCEPHALOPATHY [None]
  - COMPLETED SUICIDE [None]
  - INCREASED BRONCHIAL SECRETION [None]
  - GASTROINTESTINAL HAEMORRHAGE [None]
  - TACHYCARDIA [None]
  - ALANINE AMINOTRANSFERASE INCREASED [None]
  - RESPIRATORY DEPRESSION [None]
  - HYPOTENSION [None]
  - ASPARTATE AMINOTRANSFERASE INCREASED [None]
  - COMA [None]
